FAERS Safety Report 7805569-2 (Version None)
Quarter: 2011Q4

REPORT INFORMATION
  Report Type: 
  Country: None (occurrence: None)
  Receive Date: 20111010
  Receipt Date: 20111005
  Transmission Date: 20120403
  Serious: Yes (Other)
  Sender: FDA-Public Use
  Company Number: US-MERCK-1109USA00517

PATIENT
  Sex: Female

DRUGS (2)
  1. FOSAMAX [Suspect]
     Route: 048
     Dates: start: 20000101
  2. FOSAMAX [Suspect]
     Route: 048
     Dates: start: 20000101

REACTIONS (8)
  - FEMUR FRACTURE [None]
  - THYROID DISORDER [None]
  - CALCIUM DEFICIENCY [None]
  - TOOTH DISORDER [None]
  - HYPERTENSION [None]
  - BLOOD CHOLESTEROL INCREASED [None]
  - STEROID THERAPY [None]
  - DEPRESSION [None]
